FAERS Safety Report 20771961 (Version 2)
Quarter: 2022Q2

REPORT INFORMATION
  Report Type: Report from Study
  Country: US (occurrence: US)
  Receive Date: 20220501
  Receipt Date: 20220611
  Transmission Date: 20220721
  Serious: Yes (Hospitalization)
  Sender: FDA-Public Use
  Company Number: US-NOVARTISPH-NVSC2022US098583

PATIENT
  Sex: Male

DRUGS (1)
  1. ENTRESTO [Suspect]
     Active Substance: SACUBITRIL\VALSARTAN
     Indication: Product used for unknown indication
     Dosage: 1 DOSAGE FORM, BID (24/26MG)
     Route: 048
     Dates: start: 202203

REACTIONS (8)
  - Blood sodium decreased [Recovering/Resolving]
  - Weight fluctuation [Recovering/Resolving]
  - Odynophagia [Recovering/Resolving]
  - Eating disorder [Unknown]
  - Decreased appetite [Recovering/Resolving]
  - Peripheral arterial occlusive disease [Unknown]
  - Decreased activity [Unknown]
  - Asthenia [Unknown]
